FAERS Safety Report 21242348 (Version 1)
Quarter: 2022Q3

REPORT INFORMATION
  Report Type: Report from Study
  Country: JP (occurrence: JP)
  Receive Date: 20220823
  Receipt Date: 20220823
  Transmission Date: 20221027
  Serious: Yes (Other)
  Sender: FDA-Public Use
  Company Number: JP-SUN PHARMACEUTICAL INDUSTRIES LTD-2022R1-351735

PATIENT
  Age: 38 Year
  Sex: Female

DRUGS (1)
  1. LATANOPROST [Suspect]
     Active Substance: LATANOPROST
     Indication: Angle closure glaucoma
     Dosage: UNK
     Route: 061
     Dates: start: 2022

REACTIONS (5)
  - Abortion spontaneous [Unknown]
  - Exposure during pregnancy [Unknown]
  - Uterine contractions during pregnancy [Unknown]
  - Maternal drugs affecting foetus [Unknown]
  - Pregnancy [Unknown]
